FAERS Safety Report 21365603 (Version 1)
Quarter: 2022Q3

REPORT INFORMATION
  Report Type: Spontaneous
  Country: DE (occurrence: DE)
  Receive Date: 20220922
  Receipt Date: 20220922
  Transmission Date: 20221026
  Serious: Yes (Hospitalization)
  Sender: FDA-Public Use
  Company Number: DE-NOVARTISPH-NVSC2022DE209830

PATIENT
  Age: 62 Year
  Sex: Female
  Weight: 41 kg

DRUGS (9)
  1. PREDNISOLONE [Suspect]
     Active Substance: PREDNISOLONE
     Indication: Product used for unknown indication
     Dosage: 20 MG, QD (1-0-0-0)
     Route: 065
  2. BECLOMETHASONE\FORMOTEROL [Suspect]
     Active Substance: BECLOMETHASONE\FORMOTEROL
     Indication: Product used for unknown indication
     Dosage: 100|6 ?G, BID (2-0-2-0)
     Route: 065
  3. FENTANYL [Concomitant]
     Active Substance: FENTANYL
     Indication: Product used for unknown indication
     Dosage: 62.5 UG (SCHEMA)
     Route: 062
  4. METAMIZOLE [Concomitant]
     Active Substance: METAMIZOLE
     Indication: Product used for unknown indication
     Dosage: 1 DRP, TID (1 TROPFEN, 30-30-30-0)
     Route: 065
  5. HYDROMORPHONE [Concomitant]
     Active Substance: HYDROMORPHONE
     Indication: Product used for unknown indication
     Dosage: 2 MG, BID (1-0-1-0)
     Route: 065
  6. PANTOPRAZOLE [Concomitant]
     Active Substance: PANTOPRAZOLE
     Indication: Product used for unknown indication
     Dosage: 40 MG, BID (1-0-1-0)
     Route: 065
  7. NEBIVOLOL [Concomitant]
     Active Substance: NEBIVOLOL
     Indication: Product used for unknown indication
     Dosage: 5 MG, QD (1-0-0-0)
     Route: 065
  8. CLONIDINE [Concomitant]
     Active Substance: CLONIDINE
     Indication: Product used for unknown indication
     Dosage: 0.075 MG, TID (1-1-1-0)
     Route: 065
  9. TORSEMIDE [Concomitant]
     Active Substance: TORSEMIDE
     Indication: Product used for unknown indication
     Dosage: 5 MG, QD (0-1-0-0)
     Route: 065

REACTIONS (16)
  - Nausea [Unknown]
  - Renal impairment [Unknown]
  - Dyspnoea [Unknown]
  - Back pain [Unknown]
  - General physical health deterioration [Unknown]
  - Cachexia [Unknown]
  - Pain [Unknown]
  - Sepsis [Unknown]
  - Systemic infection [Unknown]
  - Electrolyte imbalance [Unknown]
  - Abdominal pain upper [Unknown]
  - Pneumonia [Unknown]
  - Tachycardia [Unknown]
  - Sepsis [Unknown]
  - Hypoglycaemia [Unknown]
  - Hypertension [Unknown]
